FAERS Safety Report 5122404-4 (Version None)
Quarter: 2006Q3

REPORT INFORMATION
  Report Type: 
  Country: None (occurrence: None)
  Receive Date: 20060811
  Receipt Date: 20060713
  Transmission Date: 20061208
  Serious: No
  Sender: FDA-Public Use
  Company Number: S06-USA-02728-01

PATIENT
  Age: 96 Year
  Sex: Female

DRUGS (9)
  1. NAMENDA [Suspect]
     Indication: DEMENTIA ALZHEIMER'S TYPE
     Dosage: 5 MG BID PO
     Route: 048
     Dates: start: 20051201, end: 20060301
  2. NAMENDA [Suspect]
     Indication: DEMENTIA ALZHEIMER'S TYPE
     Dosage: 10 MG BID PO
     Route: 048
     Dates: start: 20060301, end: 20060401
  3. NAMENDA [Suspect]
     Indication: DEMENTIA ALZHEIMER'S TYPE
     Dosage: 5 MG BID PO
     Route: 048
     Dates: start: 20060401
  4. ACTOS [Suspect]
     Indication: DIABETES MELLITUS
     Dates: start: 20051201, end: 20060501
  5. ARICEPT [Concomitant]
  6. GALANTAMINE HYDROBROMIDE [Concomitant]
  7. TRAVATAN [Concomitant]
  8. VITAMINS [Concomitant]
  9. GLUCOVANCE (GLYBURIDE/METFORMIN) [Concomitant]

REACTIONS (8)
  - BLOOD PRESSURE SYSTOLIC INCREASED [None]
  - DECREASED APPETITE [None]
  - DEPRESSION [None]
  - DIZZINESS [None]
  - EYE DISORDER [None]
  - FALL [None]
  - OEDEMA PERIPHERAL [None]
  - URINARY TRACT INFECTION [None]
